FAERS Safety Report 15640665 (Version 1)
Quarter: 2018Q4

REPORT INFORMATION
  Report Type: Spontaneous
  Country: FR (occurrence: FR)
  Receive Date: 20181120
  Receipt Date: 20181120
  Transmission Date: 20190205
  Serious: Yes (Other)
  Sender: FDA-Public Use
  Company Number: FR-SA-2018SA315053

PATIENT

DRUGS (1)
  1. AUBAGIO [Suspect]
     Active Substance: TERIFLUNOMIDE
     Indication: MULTIPLE SCLEROSIS
     Dosage: UNK
     Route: 048
     Dates: start: 2017

REACTIONS (4)
  - Hypertension [Unknown]
  - Emphysema [Unknown]
  - Diarrhoea [Unknown]
  - Renal failure [Unknown]

NARRATIVE: CASE EVENT DATE: 2018
